FAERS Safety Report 11379474 (Version 4)
Quarter: 2015Q3

REPORT INFORMATION
  Report Type: Report from Study
  Country: US (occurrence: US)
  Receive Date: 20150814
  Receipt Date: 20150929
  Transmission Date: 20151125
  Serious: No
  Sender: FDA-Public Use
  Company Number: US-AMGEN-USASP2015081554

PATIENT
  Age: 35 Year
  Sex: Female

DRUGS (2)
  1. ENBREL [Suspect]
     Active Substance: ETANERCEPT
     Indication: PSORIATIC ARTHROPATHY
     Dosage: 50 MG, QWK
     Route: 058
     Dates: start: 20150801, end: 20150824
  2. ENBREL [Suspect]
     Active Substance: ETANERCEPT
     Dosage: UNK
     Route: 065

REACTIONS (6)
  - Pruritus generalised [Unknown]
  - Fatigue [Unknown]
  - Mass [Unknown]
  - Injection site urticaria [Not Recovered/Not Resolved]
  - Blister [Unknown]
  - Rash [Unknown]

NARRATIVE: CASE EVENT DATE: 2015
